FAERS Safety Report 26053537 (Version 1)
Quarter: 2025Q4

REPORT INFORMATION
  Report Type: Spontaneous
  Country: US (occurrence: US)
  Receive Date: 20251117
  Receipt Date: 20251117
  Transmission Date: 20260117
  Serious: No
  Sender: VERTEX
  Company Number: US-VERTEX PHARMACEUTICALS-2025-018771

PATIENT

DRUGS (1)
  1. JOURNAVX [Suspect]
     Active Substance: SUZETRIGINE
     Indication: Product used for unknown indication
     Dosage: 50MG SUZETRIGINE TABLETS
     Route: 048

REACTIONS (1)
  - Chest discomfort [Unknown]
